FAERS Safety Report 6308995-6 (Version None)
Quarter: 2009Q3

REPORT INFORMATION
  Report Type: 
  Country: None (occurrence: None)
  Receive Date: 20090813
  Receipt Date: 20090806
  Transmission Date: 20100115
  Serious: Yes (Hospitalization, Disabling)
  Sender: FDA-Public Use
  Company Number: CH-MERCK-0908CHE00005

PATIENT
  Age: 83 Year
  Sex: Female
  Weight: 41 kg

DRUGS (7)
  1. FOSAMAX [Suspect]
     Indication: OSTEOPOROSIS
     Route: 048
     Dates: start: 20020101, end: 20090515
  2. ACETAMINOPHEN [Concomitant]
     Route: 048
  3. GABAPENTIN [Concomitant]
     Route: 048
  4. ESOMEPRAZOLE MAGNESIUM [Concomitant]
     Route: 048
  5. BUPRENORPHINE [Concomitant]
     Route: 048
  6. BUPRENORPHINE HYDROCHLORIDE [Concomitant]
     Route: 048
  7. CALCIUM CARBONATE AND CHOLECALCIFEROL [Concomitant]
     Route: 048

REACTIONS (2)
  - OSTEONECROSIS [None]
  - PAIN [None]
